FAERS Safety Report 8035623-4 (Version None)
Quarter: 2012Q1

REPORT INFORMATION
  Report Type: 
  Country: None (occurrence: None)
  Receive Date: 20120111
  Receipt Date: 20111228
  Transmission Date: 20120608
  Serious: Yes (Other)
  Sender: FDA-Public Use
  Company Number: GB-RANBAXY-2011R1-50776

PATIENT
  Sex: Male

DRUGS (5)
  1. NAPROXEN [Suspect]
     Indication: PHLEBITIS
     Dosage: UNK
     Route: 065
  2. NAPROXEN [Suspect]
     Indication: MUSCLE TIGHTNESS
  3. PHENOXYMETHYLPENICILLIN [Suspect]
     Indication: TONSILLITIS
     Dosage: 250 MG, QD
     Route: 065
     Dates: start: 20110401
  4. NAPROXEN [Suspect]
     Indication: BACK PAIN
     Dosage: UNK
     Route: 048
     Dates: start: 20101018
  5. IBUPROFEN [Suspect]
     Indication: TONSILLITIS
     Dosage: UNK, UNK
     Route: 048
     Dates: start: 20110401

REACTIONS (13)
  - HEART RATE INCREASED [None]
  - DISTURBANCE IN ATTENTION [None]
  - DYSPNOEA [None]
  - MUSCULAR WEAKNESS [None]
  - DISORIENTATION [None]
  - SENSORY DISTURBANCE [None]
  - FEELING ABNORMAL [None]
  - HYPERCHLORHYDRIA [None]
  - NAUSEA [None]
  - MUSCULOSKELETAL DISCOMFORT [None]
  - HYPOAESTHESIA ORAL [None]
  - CONFUSIONAL STATE [None]
  - TUNNEL VISION [None]
